FAERS Safety Report 12964975 (Version 1)
Quarter: 2016Q4

REPORT INFORMATION
  Report Type: Spontaneous
  Country: US (occurrence: US)
  Receive Date: 20161122
  Receipt Date: 20161122
  Transmission Date: 20170207
  Serious: No
  Sender: FDA-Public Use
  Company Number: US-ALLERGAN-1670793US

PATIENT
  Age: 40 Year
  Sex: Female

DRUGS (1)
  1. KYBELLA [Suspect]
     Active Substance: DEOXYCHOLIC ACID
     Indication: FAT TISSUE INCREASED
     Dosage: UNK
     Route: 058
     Dates: start: 20160930, end: 20160930

REACTIONS (5)
  - Injection site swelling [Unknown]
  - Hypoaesthesia oral [Unknown]
  - Sensory disturbance [Unknown]
  - Erythema [Unknown]
  - Chest pain [Unknown]

NARRATIVE: CASE EVENT DATE: 20160930
